FAERS Safety Report 19984210 (Version 1)
Quarter: 2021Q4

REPORT INFORMATION
  Report Type: Spontaneous
  Country: US (occurrence: US)
  Receive Date: 20211022
  Receipt Date: 20211022
  Transmission Date: 20220303
  Serious: No
  Sender: FDA-Public Use
  Company Number: US-GSKCCFUS-CASE-01194454_AE-69874

PATIENT
  Age: 10 Year
  Sex: Male

DRUGS (2)
  1. FLOVENT HFA [Suspect]
     Active Substance: FLUTICASONE PROPIONATE
     Indication: Asthma
     Dosage: 1 PUFF(S), BID
     Route: 055
     Dates: start: 20211013
  2. ALBUTEROL SULFATE [Suspect]
     Active Substance: ALBUTEROL SULFATE
     Indication: Asthma
     Dosage: UNK
     Route: 055

REACTIONS (3)
  - Device use error [Unknown]
  - Drug ineffective [Unknown]
  - Underdose [Unknown]

NARRATIVE: CASE EVENT DATE: 20211013
